FAERS Safety Report 25865808 (Version 1)
Quarter: 2025Q3

REPORT INFORMATION
  Report Type: Spontaneous
  Country: US (occurrence: US)
  Receive Date: 20250930
  Receipt Date: 20250930
  Transmission Date: 20251021
  Serious: Yes (Other)
  Sender: ALEMBIC
  Company Number: US-ALEMBIC PHARMACUETICALS LIMITED-2025SCAL001261

PATIENT

DRUGS (1)
  1. DOCETAXEL [Suspect]
     Active Substance: DOCETAXEL
     Indication: Prostate cancer
     Route: 065

REACTIONS (5)
  - Pigmentary maculopathy [Recovering/Resolving]
  - Macular pigmentary changes [Recovering/Resolving]
  - Vision blurred [Unknown]
  - Visual acuity reduced [Recovering/Resolving]
  - Maculopathy [Recovering/Resolving]
